FAERS Safety Report 11859044 (Version 1)
Quarter: 2015Q4

REPORT INFORMATION
  Report Type: Spontaneous
  Country: US (occurrence: US)
  Receive Date: 20151222
  Receipt Date: 20151222
  Transmission Date: 20160305
  Serious: No
  Sender: FDA-Public Use
  Company Number: US-ASTRAZENECA-2015SF28573

PATIENT
  Age: 72 Year
  Sex: Female

DRUGS (3)
  1. VERAPAMIL [Concomitant]
     Active Substance: VERAPAMIL HYDROCHLORIDE
  2. IBRANCE [Suspect]
     Active Substance: PALBOCICLIB
     Route: 065
  3. FASLODEX [Suspect]
     Active Substance: FULVESTRANT
     Route: 030

REACTIONS (4)
  - Palpitations [Unknown]
  - Intentional product misuse [Unknown]
  - Platelet count decreased [Unknown]
  - Underdose [Unknown]
